FAERS Safety Report 12691234 (Version 1)
Quarter: 2016Q3

REPORT INFORMATION
  Report Type: Spontaneous
  Country: FR (occurrence: FR)
  Receive Date: 20160826
  Receipt Date: 20160826
  Transmission Date: 20161109
  Serious: Yes (Hospitalization)
  Sender: FDA-Public Use
  Company Number: FR-MYLANLABS-2016M1035272

PATIENT

DRUGS (2)
  1. RIMACTAN                           /00146901/ [Suspect]
     Active Substance: RIFAMPIN
     Indication: STREPTOCOCCAL ENDOCARDITIS
     Dosage: 1200 MG, QD
     Dates: start: 20160428, end: 20160502
  2. LEVOFLOXACIN 500 MG FILM-COATED TABLETS [Suspect]
     Active Substance: LEVOFLOXACIN
     Indication: STREPTOCOCCAL ENDOCARDITIS
     Dosage: 500 MG, QD
     Dates: start: 20160428, end: 20160502

REACTIONS (1)
  - Cholestasis [Recovered/Resolved]

NARRATIVE: CASE EVENT DATE: 201604
